FAERS Safety Report 4704829-1 (Version None)
Quarter: 2005Q3

REPORT INFORMATION
  Report Type: 
  Country: None (occurrence: None)
  Receive Date: 20050701
  Receipt Date: 20050413
  Transmission Date: 20060218
  Serious: No
  Sender: FDA-Public Use
  Company Number: US-GLAXOSMITHKLINE-A0553999A

PATIENT
  Age: 78 Year
  Sex: Female

DRUGS (2)
  1. PARNATE [Suspect]
     Indication: ELECTROLYTE IMBALANCE
     Dosage: 10MG PER DAY
     Route: 048
     Dates: start: 19980101, end: 19990101
  2. NO CONCURRENT MEDICATION [Concomitant]

REACTIONS (8)
  - AMNESIA [None]
  - ANOREXIA [None]
  - FEAR [None]
  - FEELINGS OF WORTHLESSNESS [None]
  - INSOMNIA [None]
  - NERVOUSNESS [None]
  - TREMOR [None]
  - VISION BLURRED [None]
